FAERS Safety Report 17959008 (Version 6)
Quarter: 2020Q4

REPORT INFORMATION
  Report Type: Report from Study
  Country: JP (occurrence: JP)
  Receive Date: 20200629
  Receipt Date: 20201130
  Transmission Date: 20210113
  Serious: Yes (Death, Life-Threatening, Hospitalization, Disabling, Other)
  Sender: FDA-Public Use
  Company Number: JP-PFIZER INC-2020-07443

PATIENT
  Age: 64 Year
  Sex: Male
  Weight: 58 kg

DRUGS (6)
  1. BRAFTOVI [Suspect]
     Active Substance: ENCORAFENIB
     Indication: MALIGNANT MELANOMA
     Dosage: 450 MG, EVERYDAY
     Route: 048
     Dates: start: 20190509, end: 20191004
  2. MEKTOVI [Suspect]
     Active Substance: BINIMETINIB
     Indication: MALIGNANT MELANOMA
     Dosage: 90 MG, EVERYDAY
     Route: 048
     Dates: start: 20190509, end: 20191004
  3. OPDIVO [Suspect]
     Active Substance: NIVOLUMAB
     Indication: MALIGNANT MELANOMA
     Dosage: 80 MG, Q3W
     Route: 041
     Dates: start: 20181105, end: 20190109
  4. TEGRETOL [Suspect]
     Active Substance: CARBAMAZEPINE
     Indication: TRIGEMINAL NEURALGIA
     Dosage: 100 MG, EVERYDAY
     Route: 065
     Dates: start: 20190124, end: 20190207
  5. YERVOY [Suspect]
     Active Substance: IPILIMUMAB
     Indication: MALIGNANT MELANOMA
     Dosage: 3 MG/KG, Q3W
     Route: 041
     Dates: start: 20181105, end: 20190109
  6. RANMARK [Concomitant]
     Active Substance: DENOSUMAB
     Dosage: 120MG/BODY
     Route: 065

REACTIONS (12)
  - Diarrhoea [Recovered/Resolved]
  - Rash [Unknown]
  - Uveitis [Not Recovered/Not Resolved]
  - Drug eruption [Recovered/Resolved]
  - Peripheral motor neuropathy [Recovering/Resolving]
  - Hyponatraemia [Recovering/Resolving]
  - Herpes zoster [Recovering/Resolving]
  - Hepatic function abnormal [Recovered/Resolved]
  - Myositis [Recovering/Resolving]
  - Cranial nerve palsies multiple [Recovering/Resolving]
  - Serous retinopathy [Recovered/Resolved]
  - Haematochezia [Recovered/Resolved]

NARRATIVE: CASE EVENT DATE: 20181122
